FAERS Safety Report 12104524 (Version 2)
Quarter: 2016Q1

REPORT INFORMATION
  Report Type: Spontaneous
  Country: US (occurrence: US)
  Receive Date: 20160223
  Receipt Date: 20160314
  Transmission Date: 20160526
  Serious: No
  Sender: FDA-Public Use
  Company Number: US-BAYER-2016-034318

PATIENT
  Age: 40 Year
  Sex: Female

DRUGS (1)
  1. MIRENA [Suspect]
     Active Substance: LEVONORGESTREL
     Indication: CONTRACEPTION
     Dosage: UNK
     Route: 015
     Dates: start: 20151016, end: 20151103

REACTIONS (4)
  - Headache [Recovered/Resolved]
  - Migraine [Recovered/Resolved]
  - Impaired work ability [Recovered/Resolved]
  - Vision blurred [Recovered/Resolved]

NARRATIVE: CASE EVENT DATE: 20151017
